FAERS Safety Report 6651828-9 (Version None)
Quarter: 2010Q1

REPORT INFORMATION
  Report Type: 
  Country: None (occurrence: None)
  Receive Date: 20100325
  Receipt Date: 20100322
  Transmission Date: 20100710
  Serious: Yes (Other)
  Sender: FDA-Public Use
  Company Number: IT-ROXANE LABORATORIES, INC.-2010-RO-00308RO

PATIENT
  Age: 55 Year
  Sex: Female

DRUGS (5)
  1. METHOTREXATE [Suspect]
     Indication: MUSCULOSKELETAL PAIN
     Route: 048
     Dates: start: 20020901
  2. CYCLOSPORINE [Suspect]
     Indication: ARTHRITIS
     Dosage: 150 MG
  3. METHYLPREDNISOLONE [Suspect]
     Indication: ARTHRITIS
     Dosage: 8 MG
  4. METHYLPREDNISOLONE [Suspect]
  5. METHYLPREDNISOLONE [Suspect]
     Dosage: 4 MG

REACTIONS (4)
  - DISEASE RECURRENCE [None]
  - KAPOSI'S SARCOMA [None]
  - MUSCULOSKELETAL PAIN [None]
  - SYNOVITIS [None]
